FAERS Safety Report 9693372 (Version 1)
Quarter: 2013Q4

REPORT INFORMATION
  Report Type: Spontaneous
  Country: US (occurrence: None)
  Receive Date: 20131114
  Receipt Date: 20131114
  Transmission Date: 20140711
  Serious: Yes (Hospitalization)
  Sender: FDA-Public Use
  Company Number: IPC201311-000453

PATIENT
  Age: 67 Year
  Sex: Male

DRUGS (6)
  1. WARFARIN [Suspect]
     Indication: ANTICOAGULANT THERAPY
  2. ASPIRIN [Suspect]
     Indication: CARDIOVASCULAR EVENT PROPHYLAXIS
  3. DABIGATRAN [Suspect]
     Indication: ANTICOAGULANT THERAPY
  4. SOTALOL (SOTALOL) (SOTALOL) [Concomitant]
  5. OMEPRAZOLE (OMEPRAZOLE) (OMEPRAZOLE) [Concomitant]
  6. LISINOPRIL (LISINOPRIL) (LISINOPRIL) [Concomitant]

REACTIONS (3)
  - Renal tubular disorder [None]
  - Injury [None]
  - Neuropathy peripheral [None]
